FAERS Safety Report 6278464-0 (Version None)
Quarter: 2009Q3

REPORT INFORMATION
  Report Type: 
  Country: None (occurrence: None)
  Receive Date: 20090721
  Receipt Date: 20090702
  Transmission Date: 20100115
  Serious: Yes (Life-Threatening)
  Sender: FDA-Public Use
  Company Number: B0580678A

PATIENT
  Sex: Male

DRUGS (6)
  1. WELLBUTRIN XL [Suspect]
     Indication: DEPRESSION
     Dosage: 150 MG / PER DAY /
     Dates: start: 20090423, end: 20090529
  2. DISULFIRAM [Suspect]
     Indication: ALCOHOL ABUSE
     Dosage: 200 MG / PER DAY / ORAL
     Route: 048
     Dates: end: 20090529
  3. QUETIAPINE FUMARATE [Suspect]
     Indication: DRUG USE FOR UNKNOWN INDICATION
     Dosage: ORAL
     Route: 048
     Dates: end: 20090529
  4. TRIMEPRAZINE TARTRATE [Suspect]
     Indication: INSOMNIA
     Dosage: 30 MG / PER DAY / ORAL
     Route: 048
     Dates: end: 20090529
  5. MIRTAZAPINE [Concomitant]
  6. VENLAFAXINE HYDROCHLORIDE [Concomitant]

REACTIONS (2)
  - DEPRESSION [None]
  - HEPATITIS [None]
